FAERS Safety Report 8474575-X (Version None)
Quarter: 2012Q2

REPORT INFORMATION
  Report Type: 
  Country: None (occurrence: None)
  Receive Date: 20120628
  Receipt Date: 20120620
  Transmission Date: 20120825
  Serious: Yes (Hospitalization)
  Sender: FDA-Public Use
  Company Number: US-BAYER-2012-062574

PATIENT
  Age: 40 Year
  Sex: Female

DRUGS (27)
  1. ZYRTEC [Concomitant]
     Dosage: 10 MG, UNK
     Dates: start: 20050124, end: 20110730
  2. BISOPROLOL FUMARATE AND HYDROCHLOROTHIAZIDE [Concomitant]
     Dosage: UNK
     Dates: start: 20060628, end: 20110527
  3. TOPAMAX [Concomitant]
     Dosage: 50 MG, BID
     Dates: start: 20100412, end: 20110511
  4. TRETINOIN [Concomitant]
     Dosage: 0.1 %, UNK
     Route: 061
     Dates: start: 20110506
  5. HYDROCHLOROTHIAZIDE [Concomitant]
     Dosage: UNK
     Dates: start: 20110730
  6. IBUPROFEN [Concomitant]
     Dosage: UNK
     Dates: start: 20110730
  7. ZANTAC [Concomitant]
     Dosage: 300 MG, UNK
     Dates: start: 20090722, end: 20110730
  8. PROMETHAZINE HYDROCHLORIDE [Concomitant]
     Dosage: 25 MG ONE  Q6H(EVERY 6 HR)
     Dates: start: 20110420, end: 20110715
  9. VALIUM [Concomitant]
  10. YASMIN [Suspect]
     Dosage: UNK
  11. HYDROXYZINE HCL [Concomitant]
     Dosage: 25 MG, UNK
     Dates: start: 20050124, end: 20110506
  12. BENZACLIN [Concomitant]
     Dosage: UNK
     Dates: start: 20110506
  13. FLURBIPROFEN [Concomitant]
     Dosage: UNK
     Dates: start: 20110602
  14. PAROXETINE HCL [Concomitant]
     Dosage: 30 MG, QD
  15. MAXALT [Concomitant]
     Dosage: 10 MG 1 BY MOUTH EVERY 2 HOURS AS NEEDED MAX 6 EVERY WEEK
     Dates: start: 20100408, end: 20110730
  16. ZIAC [Concomitant]
     Dosage: 5/6.5 MG
     Dates: start: 20110527
  17. TRANSDERM SCOP [Concomitant]
     Dosage: 1.5 MG, EVERY 3 DAYS PRN
     Dates: start: 20110714
  18. ALPRAZOLAM [Concomitant]
     Dosage: 0.5 MG, UNK
     Dates: start: 20110420, end: 20110714
  19. DROSPIRENONE AND ETHINYL ESTRADIOL [Suspect]
  20. TRIAMTERENE AND HYDROCHLOROTHIAZIDE [Concomitant]
     Dosage: UNK, 37.5-25 MG TO 75-50 MG
     Dates: start: 20050220, end: 20110506
  21. TOPAMAX [Concomitant]
     Dosage: 50 MG, BID
     Dates: start: 20110511
  22. HYDROCODONE BITARTRATE + ACETAMINOPHEN [Concomitant]
     Dosage: UNK
     Dates: start: 20110521
  23. SYNTHROID [Concomitant]
     Dosage: 0.05 MG, UNK
     Dates: start: 20000607, end: 20110527
  24. FLEXERIL [Concomitant]
     Dosage: 10 MG, UNK
     Dates: start: 20061022, end: 20110614
  25. XENICAL [Concomitant]
     Dosage: 120 MG, UNK
     Dates: start: 20110606
  26. ASPIRIN [Concomitant]
     Dosage: UNK
     Dates: start: 20110730
  27. SCOPACE [Concomitant]
     Indication: MOTION SICKNESS
     Dosage: 0.4 MG, ONE 4 TIMES A DAY AS NEEDED
     Dates: start: 20110606

REACTIONS (2)
  - PULMONARY EMBOLISM [None]
  - DEEP VEIN THROMBOSIS [None]
